FAERS Safety Report 17238228 (Version 6)
Quarter: 2021Q1

REPORT INFORMATION
  Report Type: Report from Study
  Country: US (occurrence: US)
  Receive Date: 20200106
  Receipt Date: 20210102
  Transmission Date: 20210419
  Serious: Yes (Other)
  Sender: FDA-Public Use
  Company Number: NVSC2019US079565

PATIENT
  Sex: Female

DRUGS (1)
  1. BEOVU [Suspect]
     Active Substance: BROLUCIZUMAB-DBLL
     Indication: NEOVASCULAR AGE-RELATED MACULAR DEGENERATION
     Dosage: UNK, RIGHT EYE
     Route: 047
     Dates: start: 20191118

REACTIONS (5)
  - Glaucoma [Unknown]
  - Lacrimation increased [Unknown]
  - Dry eye [Unknown]
  - Metamorphopsia [Unknown]
  - Nasopharyngitis [Unknown]
